FAERS Safety Report 8454141-2 (Version None)
Quarter: 2012Q2

REPORT INFORMATION
  Report Type: 
  Country: None (occurrence: None)
  Receive Date: 20120620
  Receipt Date: 20120613
  Transmission Date: 20120825
  Serious: Yes (Hospitalization)
  Sender: FDA-Public Use
  Company Number: US-B.I. PHARMACEUTICALS,INC./RIDGEFIELD-2012-BP-11434BP

PATIENT
  Sex: Male
  Weight: 140.16 kg

DRUGS (1)
  1. PRADAXA [Suspect]
     Indication: ATRIAL FIBRILLATION
     Dosage: 300 MG
     Route: 048
     Dates: start: 20120511

REACTIONS (9)
  - HYPOAESTHESIA EYE [None]
  - EYE SWELLING [None]
  - HYPOAESTHESIA [None]
  - OEDEMA PERIPHERAL [None]
  - HEADACHE [None]
  - SWELLING [None]
  - DYSPNOEA [None]
  - FATIGUE [None]
  - DIZZINESS [None]
